FAERS Safety Report 10602019 (Version 2)
Quarter: 2015Q1

REPORT INFORMATION
  Report Type: Spontaneous
  Country: US (occurrence: US)
  Receive Date: 20141124
  Receipt Date: 20150107
  Transmission Date: 20150720
  Serious: Yes (Hospitalization, Other)
  Sender: FDA-Public Use
  Company Number: US-SA-2014SA158800

PATIENT
  Age: 82 Year
  Sex: Male
  Weight: 97.06 kg

DRUGS (2)
  1. SOLOSTAR [Concomitant]
     Active Substance: DEVICE
     Indication: DIABETES MELLITUS
  2. LANTUS SOLOSTAR [Suspect]
     Active Substance: INSULIN GLARGINE
     Indication: DIABETES MELLITUS
     Dosage: 12UG/DAY AROUND 1800
     Route: 065

REACTIONS (3)
  - Cardiac failure congestive [Recovered/Resolved]
  - Muscle spasms [Unknown]
  - Vascular graft [Unknown]

NARRATIVE: CASE EVENT DATE: 201409
